FAERS Safety Report 25912598 (Version 1)
Quarter: 2025Q4

REPORT INFORMATION
  Report Type: Report from Study
  Country: US (occurrence: US)
  Receive Date: 20251013
  Receipt Date: 20251013
  Transmission Date: 20260118
  Serious: Yes (Death, Other)
  Sender: AUROBINDO
  Company Number: US-AUROBINDO-AUR-APL-2023-008464

PATIENT

DRUGS (1)
  1. CLOFARABINE [Suspect]
     Active Substance: CLOFARABINE
     Indication: Langerhans^ cell histiocytosis
     Dosage: UNK
     Route: 065

REACTIONS (1)
  - Therapy non-responder [Fatal]
